FAERS Safety Report 7053269-1 (Version None)
Quarter: 2010Q4

REPORT INFORMATION
  Report Type: 
  Country: None (occurrence: None)
  Receive Date: 20101020
  Receipt Date: 20101005
  Transmission Date: 20110411
  Serious: Yes (Hospitalization, Other)
  Sender: FDA-Public Use
  Company Number: PHHY2009JP45956

PATIENT
  Sex: Male
  Weight: 70 kg

DRUGS (11)
  1. DIOVAN [Suspect]
     Dosage: 40 MG, QD
     Route: 048
     Dates: start: 20080918
  2. DIOVAN [Suspect]
     Dosage: 80 MG, QD
     Route: 048
     Dates: start: 20080926, end: 20081008
  3. DIOVAN [Suspect]
     Dosage: 160 MG, QD
     Route: 048
     Dates: start: 20081009, end: 20090107
  4. DIOVAN [Suspect]
     Dosage: 80 MG, QD
     Route: 048
     Dates: start: 20090108, end: 20090128
  5. DIOVAN [Suspect]
     Dosage: 80 MG, BID
     Route: 048
     Dates: start: 20090129
  6. DIOVAN [Suspect]
     Dosage: 40 MG TWICE DAILY
     Route: 048
     Dates: start: 20090227
  7. ATELEC [Concomitant]
     Dosage: 10 MG, UNK
     Route: 048
     Dates: start: 20090129
  8. SOTACOR [Concomitant]
     Dosage: 80 MG, UNK
     Route: 048
     Dates: start: 20080908
  9. WARFARIN POTASSIUM [Concomitant]
     Dosage: 2 MG, UNK
     Route: 048
     Dates: start: 20080903
  10. LASIX [Concomitant]
     Dosage: 20 MG, UNK
     Route: 048
     Dates: start: 20090108
  11. MARZULENE S [Concomitant]
     Dosage: 1.5 G, UNK
     Route: 048
     Dates: start: 20090108

REACTIONS (8)
  - ATRIAL FIBRILLATION [None]
  - BLOOD PRESSURE DIASTOLIC DECREASED [None]
  - BLOOD PRESSURE SYSTOLIC DECREASED [None]
  - COUGH [None]
  - DIZZINESS [None]
  - ORTHOSTATIC HYPOTENSION [None]
  - PNEUMONIA [None]
  - X-RAY ABNORMAL [None]
